FAERS Safety Report 6108621-5 (Version None)
Quarter: 2009Q1

REPORT INFORMATION
  Report Type: 
  Country: None (occurrence: None)
  Receive Date: 20090305
  Receipt Date: 20090223
  Transmission Date: 20090719
  Serious: Yes (Disabling)
  Sender: FDA-Public Use
  Company Number: OSCN-NO-0902S-0117

PATIENT
  Sex: Male

DRUGS (10)
  1. OMNISCAN [Suspect]
     Indication: DRUG USE FOR UNKNOWN INDICATION
     Dosage: 30 ML, SINGLE DOSE, I.V.
     Route: 042
     Dates: start: 20020318, end: 20020318
  2. DIGOXIN [Concomitant]
  3. PLENDIL [Concomitant]
  4. CALCIUM ACETATE (PHOS-EX) [Concomitant]
  5. ACETYLSALICYLIC ACID (MAGNYL) [Concomitant]
  6. COZAAR [Concomitant]
  7. ALLOPURINOL [Concomitant]
  8. ALPHACALCIDOL (ETALPHA) [Concomitant]
  9. METROPOLOL SUCCINATE (SELO-ZOK) [Concomitant]
  10. MORPHINE SULFATE (CONTALGIN) [Concomitant]

REACTIONS (5)
  - CALCIPHYLAXIS [None]
  - NEPHROGENIC SYSTEMIC FIBROSIS [None]
  - PULMONARY ARTERIAL PRESSURE INCREASED [None]
  - RESTLESSNESS [None]
  - WOUND [None]
